FAERS Safety Report 8788744 (Version 2)
Quarter: 2012Q4

REPORT INFORMATION
  Report Type: 
  Country: SE (occurrence: SE)
  Receive Date: 20120917
  Receipt Date: 20121004
  Transmission Date: 20130627
  Serious: Yes (Life-Threatening)
  Sender: FDA-Public Use
  Company Number: SE-AMGEN-SWECT2012056818

PATIENT
  Age: 69 Year
  Sex: Female

DRUGS (3)
  1. ETANERCEPT [Suspect]
     Indication: RHEUMATOID ARTHRITIS
     Dosage: 50 mg, qwk
     Route: 058
     Dates: start: 20000719
  2. ETANERCEPT [Suspect]
     Dosage: 50 mg, qwk
     Route: 058
     Dates: start: 20120118, end: 20120715
  3. WARAN [Concomitant]
     Indication: ATRIAL FIBRILLATION
     Dosage: UNK

REACTIONS (1)
  - Infection susceptibility increased [Unknown]
